FAERS Safety Report 7380406-1 (Version None)
Quarter: 2011Q1

REPORT INFORMATION
  Report Type: 
  Country: None (occurrence: None)
  Receive Date: 20110318
  Receipt Date: 20110306
  Transmission Date: 20110831
  Serious: Yes (Death)
  Sender: FDA-Public Use
  Company Number: DKLU1067319

PATIENT
  Sex: Female

DRUGS (9)
  1. COSMEGEN [Suspect]
     Indication: GESTATIONAL TROPHOBLASTIC TUMOUR
     Dosage: 0.5 MG MILLIGRAM(S), INTRAVENOUS
     Route: 042
  2. ETOPOSIDE [Suspect]
     Indication: GESTATIONAL TROPHOBLASTIC TUMOUR
  3. LEUCOMAX (MOLGRAMOSTIM) [Concomitant]
  4. EPTOIN (PHENYTOIN SODIUM) [Concomitant]
  5. CYCLOPHOSPHAMIDE [Suspect]
     Indication: GESTATIONAL TROPHOBLASTIC TUMOUR
  6. BRAIN RADIOTHERAPY [Suspect]
     Indication: PRODUCT USED FOR UNKNOWN INDICATION
  7. VINCRISTINE [Suspect]
     Indication: GESTATIONAL TROPHOBLASTIC TUMOUR
  8. CISPLATIN [Suspect]
     Indication: GESTATIONAL TROPHOBLASTIC TUMOUR
  9. METHOTREXATE [Suspect]
     Indication: GESTATIONAL TROPHOBLASTIC TUMOUR
     Dosage: 10 MG MILLIGRAM(S), INTRATHECAL
     Route: 039

REACTIONS (3)
  - REFRACTORY CANCER [None]
  - HAEMATOTOXICITY [None]
  - TERMINAL STATE [None]
